FAERS Safety Report 7724538-4 (Version None)
Quarter: 2011Q3

REPORT INFORMATION
  Report Type: 
  Country: None (occurrence: None)
  Receive Date: 20110901
  Receipt Date: 20110830
  Transmission Date: 20111222
  Serious: Yes (Hospitalization, Disabling, Other)
  Sender: FDA-Public Use
  Company Number: US-MERCK-1103USA03817

PATIENT
  Age: 60 Year
  Sex: Female
  Weight: 62 kg

DRUGS (4)
  1. DIOVAN [Concomitant]
     Route: 065
  2. FOSAMAX [Suspect]
     Route: 048
     Dates: start: 20010312, end: 20011016
  3. FOSAMAX [Suspect]
     Indication: BONE LOSS
     Route: 048
     Dates: start: 19980101, end: 20100101
  4. VITAMINS (UNSPECIFIED) [Concomitant]
     Route: 065

REACTIONS (21)
  - RENAL COLIC [None]
  - LEFT VENTRICULAR HYPERTROPHY [None]
  - FALL [None]
  - HAEMATURIA [None]
  - MITRAL VALVE INCOMPETENCE [None]
  - NEPHROLITHIASIS [None]
  - ARTHROPATHY [None]
  - PATELLA FRACTURE [None]
  - NAUSEA [None]
  - TRICUSPID VALVE INCOMPETENCE [None]
  - HYPOAESTHESIA [None]
  - BRUXISM [None]
  - DEVICE FAILURE [None]
  - BLOOD CHOLESTEROL INCREASED [None]
  - GASTROINTESTINAL DISORDER [None]
  - TOOTH DISORDER [None]
  - OSTEOPOROSIS [None]
  - OSTEOPENIA [None]
  - FEMUR FRACTURE [None]
  - BUNDLE BRANCH BLOCK RIGHT [None]
  - CALCULUS URETERIC [None]
